FAERS Safety Report 23831070 (Version 1)
Quarter: 2024Q2

REPORT INFORMATION
  Report Type: Spontaneous
  Country: US (occurrence: None)
  Receive Date: 20240507
  Receipt Date: 20240507
  Transmission Date: 20240716
  Serious: Yes (Death)
  Sender: FDA-Public Use
  Company Number: None

PATIENT
  Age: 56 Year
  Sex: Male
  Weight: 142.9 kg

DRUGS (1)
  1. DOTAREM [Suspect]
     Active Substance: GADOTERATE MEGLUMINE
     Indication: Pituitary tumour benign
     Dosage: FREQUENCY : ONCE;?
     Route: 040
     Dates: start: 20240503, end: 20240503

REACTIONS (8)
  - Burning sensation [None]
  - Scan with contrast [None]
  - Loss of consciousness [None]
  - Foaming at mouth [None]
  - Seizure [None]
  - Pulse absent [None]
  - Respiration abnormal [None]
  - Corneal reflex decreased [None]

NARRATIVE: CASE EVENT DATE: 20240503
